FAERS Safety Report 7686734-4 (Version None)
Quarter: 2011Q3

REPORT INFORMATION
  Report Type: 
  Country: None (occurrence: None)
  Receive Date: 20110811
  Receipt Date: 20110728
  Transmission Date: 20111222
  Serious: Yes (Death)
  Sender: FDA-Public Use
  Company Number: 201110983

PATIENT
  Age: 39 Year
  Sex: Male

DRUGS (1)
  1. LIORESAL [Suspect]
     Indication: MUSCLE SPASTICITY
     Dosage: 50 MCG TESTING DOSE, INTRATHECAL
     Route: 037

REACTIONS (3)
  - BRADYCARDIA [None]
  - CARDIAC ARREST [None]
  - BUNDLE BRANCH BLOCK RIGHT [None]
